FAERS Safety Report 8924598 (Version 1)
Quarter: 2012Q4

REPORT INFORMATION
  Report Type: 
  Country: US (occurrence: US)
  Receive Date: 20121126
  Receipt Date: 20121126
  Transmission Date: 20130627
  Serious: No
  Sender: FDA-Public Use
  Company Number: US-PFIZER INC-2012294993

PATIENT
  Age: 55 Year
  Sex: Female
  Weight: 58.96 kg

DRUGS (3)
  1. LYRICA [Suspect]
     Indication: MULTIPLE SCLEROSIS
     Dosage: 100 mg, 3x/day
     Dates: end: 2011
  2. LYRICA [Suspect]
     Dosage: two capsules of 100 mg, 3x/day
     Route: 048
     Dates: start: 2011, end: 2011
  3. BETASERON [Concomitant]
     Indication: MULTIPLE SCLEROSIS
     Dosage: 0.3 mg, alternate day

REACTIONS (2)
  - Pain [Recovered/Resolved]
  - Off label use [Unknown]
